FAERS Safety Report 8961601 (Version 1)
Quarter: 2012Q4

REPORT INFORMATION
  Report Type: 
  Country: US (occurrence: US)
  Receive Date: 20121213
  Receipt Date: 20121213
  Transmission Date: 20130627
  Serious: No
  Sender: FDA-Public Use
  Company Number: US-ALLERGAN-1216322US

PATIENT
  Age: 69 Year
  Sex: Female

DRUGS (5)
  1. LUMIGAN� 0.01% [Suspect]
     Indication: GLAUCOMA TRAUMATIC
     Dosage: UNK UNK, qd
     Route: 047
  2. REFRESH P.M. [Concomitant]
     Indication: DRUG USE FOR UNKNOWN INDICATION
     Dosage: UNK UNK, prn
     Route: 047
  3. REFRESH OPTIVE [Concomitant]
     Indication: DRUG USE FOR UNKNOWN INDICATION
     Route: 047
  4. REFRESH LIQUIGEL                   /00007001/ [Concomitant]
     Indication: DRUG USE FOR UNKNOWN INDICATION
     Route: 047
  5. MEDICATIONS NOS [Concomitant]
     Indication: DRUG USE FOR UNKNOWN INDICATION

REACTIONS (1)
  - Drug ineffective [Unknown]
